FAERS Safety Report 17429811 (Version 1)
Quarter: 2020Q1

REPORT INFORMATION
  Report Type: Spontaneous
  Country: US (occurrence: US)
  Receive Date: 20200218
  Receipt Date: 20200218
  Transmission Date: 20200409
  Serious: No
  Sender: FDA-Public Use
  Company Number: US-PFIZER INC-2020065469

PATIENT
  Sex: Male

DRUGS (2)
  1. PREGABALIN. [Suspect]
     Active Substance: PREGABALIN
     Indication: NEUROPATHY PERIPHERAL
     Dosage: 75 MG, UNK
  2. PREGABALIN. [Suspect]
     Active Substance: PREGABALIN
     Dosage: 100 MG, UNK

REACTIONS (8)
  - Feeling abnormal [Unknown]
  - Peripheral swelling [Unknown]
  - Oral pain [Unknown]
  - Condition aggravated [Unknown]
  - Neuralgia [Unknown]
  - Pain in extremity [Unknown]
  - Hypersensitivity [Unknown]
  - Insomnia [Unknown]
